FAERS Safety Report 18948765 (Version 3)
Quarter: 2021Q2

REPORT INFORMATION
  Report Type: Report from Study
  Country: US (occurrence: US)
  Receive Date: 20210227
  Receipt Date: 20210427
  Transmission Date: 20210717
  Serious: Yes (Other)
  Sender: FDA-Public Use
  Company Number: NVSC2021US041908

PATIENT
  Age: 52 Year
  Sex: Male

DRUGS (3)
  1. ENTRESTO [Suspect]
     Active Substance: SACUBITRIL\VALSARTAN
     Dosage: 100 MG, BID (49/51)
     Route: 048
     Dates: start: 2018
  2. ENTRESTO [Suspect]
     Active Substance: SACUBITRIL\VALSARTAN
     Indication: CARDIAC FAILURE CHRONIC
     Dosage: 50 MG, BID (24/26)
     Route: 048
     Dates: start: 2018
  3. ENTRESTO [Suspect]
     Active Substance: SACUBITRIL\VALSARTAN
     Dosage: 200 MG, BID (97/103 )
     Route: 048
     Dates: start: 2018

REACTIONS (7)
  - Loss of consciousness [Recovering/Resolving]
  - Weight increased [Not Recovered/Not Resolved]
  - Hypotension [Recovering/Resolving]
  - Echocardiogram abnormal [Recovering/Resolving]
  - COVID-19 [Recovering/Resolving]
  - Dizziness [Recovering/Resolving]
  - Dehydration [Recovering/Resolving]

NARRATIVE: CASE EVENT DATE: 2018
